FAERS Safety Report 6130871-2 (Version None)
Quarter: 2009Q1

REPORT INFORMATION
  Report Type: 
  Country: None (occurrence: None)
  Receive Date: 20090325
  Receipt Date: 20090320
  Transmission Date: 20090719
  Serious: Yes (Hospitalization)
  Sender: FDA-Public Use
  Company Number: US-BRISTOL-MYERS SQUIBB COMPANY-14549521

PATIENT
  Age: 17 Year
  Sex: Male

DRUGS (3)
  1. ABILIFY [Suspect]
     Indication: MOOD SWINGS
     Dosage: 1 DF = 10-15 MG; PRESCRIBED BETWEEN 10/2008-12/2008.
     Dates: start: 20080101
  2. ALCOHOL [Suspect]
  3. WELLBUTRIN [Concomitant]
     Indication: DEPRESSION

REACTIONS (2)
  - HEPATIC FAILURE [None]
  - TREATMENT NONCOMPLIANCE [None]
